FAERS Safety Report 7305165-X (Version None)
Quarter: 2011Q1

REPORT INFORMATION
  Report Type: 
  Country: None (occurrence: None)
  Receive Date: 20110222
  Receipt Date: 20110210
  Transmission Date: 20110831
  Serious: Yes (Death, Hospitalization, Other)
  Sender: FDA-Public Use
  Company Number: HU-ELI_LILLY_AND_COMPANY-HU201101004377

PATIENT
  Age: 62 Year
  Sex: Male

DRUGS (13)
  1. MEGASIN [Concomitant]
     Dosage: UNK, 3/D
  2. SILEGON [Concomitant]
     Dosage: 4 MG, DAILY (1/D)
  3. MAGNE-B6 [Concomitant]
     Dosage: UNK, 2/D
  4. INDOMETHACIN [Concomitant]
     Dosage: 25 MG, 3/D
  5. CONCOR [Concomitant]
     Dosage: 2.5 MG, UNK
  6. PEMETREXED [Suspect]
     Indication: SMALL CELL LUNG CANCER STAGE UNSPECIFIED
     Dosage: 985 MG ON AN OCCASION
     Route: 042
     Dates: start: 20101215, end: 20101215
  7. FOLIC ACID [Concomitant]
     Dosage: 1.5 MG, UNK
  8. CONTROLOC [Concomitant]
     Dosage: 20 MG, 2/D
  9. CERUCAL [Concomitant]
     Dosage: UNK, 2/D
  10. BONEFOS [Concomitant]
     Dosage: 1600 MG, UNK
  11. NUTRIDRINK [Concomitant]
     Dosage: 200 ML, 3/D
  12. RETAFYLLIN [Concomitant]
     Dosage: 200 MG, 2/D
  13. MEDROL [Concomitant]

REACTIONS (10)
  - BACTERIAL INFECTION [None]
  - OFF LABEL USE [None]
  - FUNGAL INFECTION [None]
  - BACTERIAL SEPSIS [None]
  - ACUTE RESPIRATORY FAILURE [None]
  - DISSEMINATED INTRAVASCULAR COAGULATION [None]
  - FUNGAL SEPSIS [None]
  - MUCOSAL INFLAMMATION [None]
  - PANCYTOPENIA [None]
  - RENAL FAILURE [None]
